FAERS Safety Report 8607860 (Version 2)
Quarter: 2013Q3

REPORT INFORMATION
  Report Type: Spontaneous
  Country: US (occurrence: US)
  Receive Date: 20120611
  Receipt Date: 20130723
  Transmission Date: 20140515
  Serious: Yes (Disabling)
  Sender: FDA-Public Use
  Company Number: US-ASTRAZENECA-2012SE34909

PATIENT
  Age: 48 Year
  Sex: Male

DRUGS (11)
  1. NEXIUM [Suspect]
     Route: 048
  2. PRILOSEC [Suspect]
     Route: 048
  3. PEPCID [Concomitant]
  4. ZANTAC [Concomitant]
  5. MYLANTA [Concomitant]
  6. MILK OF MAGNESIA [Concomitant]
  7. ALKA SELTZER [Concomitant]
  8. PEPTO BISMOL [Concomitant]
  9. OXYCONTIN [Concomitant]
     Indication: PAIN
  10. SEROQUEL [Concomitant]
     Indication: BIPOLAR DISORDER
  11. SEROQUEL [Concomitant]
     Indication: DEPRESSION

REACTIONS (8)
  - Liver disorder [Unknown]
  - Arthralgia [Unknown]
  - Osteoporosis [Unknown]
  - Musculoskeletal discomfort [Unknown]
  - Arthropathy [Unknown]
  - Back disorder [Unknown]
  - Multiple fractures [Unknown]
  - Musculoskeletal pain [Unknown]
